APPROVED DRUG PRODUCT: ELIXOPHYLLIN SR
Active Ingredient: THEOPHYLLINE
Strength: 125MG
Dosage Form/Route: CAPSULE, EXTENDED RELEASE;ORAL
Application: A086826 | Product #001
Applicant: FOREST LABORATORIES INC
Approved: Jan 29, 1985 | RLD: No | RS: No | Type: DISCN